FAERS Safety Report 8115197 (Version 3)
Quarter: 2013Q3

REPORT INFORMATION
  Report Type: Spontaneous
  Country: US (occurrence: US)
  Receive Date: 20110831
  Receipt Date: 20130702
  Transmission Date: 20140515
  Serious: Yes (Hospitalization)
  Sender: FDA-Public Use
  Company Number: US-GLAXOSMITHKLINE-A0788266A

PATIENT
  Age: 64 Year
  Sex: Male
  Weight: 130 kg

DRUGS (12)
  1. AVANDIA [Suspect]
     Indication: TYPE 2 DIABETES MELLITUS
     Dosage: 4MG PER DAY
     Route: 048
     Dates: start: 20050110, end: 200703
  2. GLUCOVANCE [Concomitant]
  3. VYTORIN [Concomitant]
  4. PRILOSEC [Concomitant]
  5. PLAVIX [Concomitant]
  6. ASPIRIN [Concomitant]
  7. METOPROLOL [Concomitant]
  8. ISOSORBIDE [Concomitant]
  9. GLYBURIDE [Concomitant]
  10. LISINOPRIL [Concomitant]
  11. ADVAIR [Concomitant]
  12. PROVENTIL [Concomitant]

REACTIONS (3)
  - Myocardial infarction [Unknown]
  - Angina pectoris [Unknown]
  - Coronary artery disease [Unknown]
